FAERS Safety Report 6247424-8 (Version None)
Quarter: 2009Q2

REPORT INFORMATION
  Report Type: 
  Country: None (occurrence: None)
  Receive Date: 20090626
  Receipt Date: 20090618
  Transmission Date: 20091009
  Serious: Yes (Other)
  Sender: FDA-Public Use
  Company Number: US-ROCHE-639503

PATIENT
  Sex: Female
  Weight: 66.2 kg

DRUGS (1)
  1. CAPECITABINE [Suspect]
     Indication: COLORECTAL CANCER
     Route: 048

REACTIONS (1)
  - BREAST CANCER METASTATIC [None]
